FAERS Safety Report 4575395-9 (Version None)
Quarter: 2005Q1

REPORT INFORMATION
  Report Type: 
  Country: None (occurrence: None)
  Receive Date: 20050131
  Receipt Date: 20050131
  Transmission Date: 20050727
  Serious: Yes (Hospitalization)
  Sender: FDA-Public Use
  Company Number: None

PATIENT
  Age: 35 Year
  Sex: Male
  Weight: 74.8435 kg

DRUGS (1)
  1. ZICAM NO-DRIP LIQUID NASAL GEL ZINCUM GLUCONICUM 2X ZICAM, LLC, PHOENI [Suspect]
     Indication: NASOPHARYNGITIS
     Dosage: 1 SPRAY NOSTRIL NASAL
     Route: 045
     Dates: start: 20050128, end: 20050128

REACTIONS (9)
  - ANOSMIA [None]
  - BURNING SENSATION [None]
  - ERYTHEMA [None]
  - INFLAMMATION [None]
  - MIGRAINE [None]
  - NASAL DISCOMFORT [None]
  - PAIN [None]
  - SINUS DISORDER [None]
  - SINUS HEADACHE [None]
